FAERS Safety Report 16282163 (Version 3)
Quarter: 2019Q4

REPORT INFORMATION
  Report Type: Report from Study
  Country: CZ (occurrence: CZ)
  Receive Date: 20190507
  Receipt Date: 20191017
  Transmission Date: 20200122
  Serious: Yes (Hospitalization)
  Sender: FDA-Public Use
  Company Number: PHHO2019CZ004587

PATIENT
  Age: 85 Year
  Sex: Female

DRUGS (2)
  1. VALSARTAN. [Suspect]
     Active Substance: VALSARTAN
     Indication: CARDIAC FAILURE
     Dosage: 160 MG, BID
     Route: 048
     Dates: start: 20180222, end: 20190326
  2. VALSARTAN. [Suspect]
     Active Substance: VALSARTAN
     Dosage: UNK
     Route: 048
     Dates: start: 20190327

REACTIONS (3)
  - Transient ischaemic attack [Recovered/Resolved]
  - Gastroenteritis [Recovered/Resolved]
  - Pelvic fracture [Recovered/Resolved]

NARRATIVE: CASE EVENT DATE: 20190114
